FAERS Safety Report 10622673 (Version 3)
Quarter: 2015Q3

REPORT INFORMATION
  Report Type: Report from Study
  Country: US (occurrence: US)
  Receive Date: 20141203
  Receipt Date: 20150818
  Transmission Date: 20151125
  Serious: No
  Sender: FDA-Public Use
  Company Number: US-GILEAD-2014-0124636

PATIENT
  Age: 63 Year
  Sex: Female

DRUGS (4)
  1. REVATIO [Concomitant]
     Active Substance: SILDENAFIL CITRATE
  2. AMBRISENTAN [Suspect]
     Active Substance: AMBRISENTAN
     Indication: PULMONARY HYPERTENSION
     Dosage: 10 MG, QD
     Route: 065
     Dates: start: 20131118
  3. AMBRISENTAN [Suspect]
     Active Substance: AMBRISENTAN
     Indication: ASTHMA
  4. AMBRISENTAN [Suspect]
     Active Substance: AMBRISENTAN
     Indication: TRICUSPID VALVE INCOMPETENCE

REACTIONS (2)
  - Hypersensitivity [Unknown]
  - Asthma [Unknown]

NARRATIVE: CASE EVENT DATE: 201410
